FAERS Safety Report 5294943-7 (Version None)
Quarter: 2007Q2

REPORT INFORMATION
  Report Type: 
  Country: None (occurrence: None)
  Receive Date: 20070412
  Receipt Date: 20060404
  Transmission Date: 20071010
  Serious: Yes (Other)
  Sender: FDA-Public Use
  Company Number: 200611888EU

PATIENT
  Age: 51 Year
  Sex: Female

DRUGS (3)
  1. NICORETTE [Suspect]
     Indication: SMOKING CESSATION THERAPY
     Dosage: 2MG SEE DOSAGE TEXT
     Route: 002
     Dates: start: 20040615
  2. OMEPRAZOLE [Concomitant]
     Route: 048
  3. FLUOXETINE [Concomitant]
     Route: 048

REACTIONS (4)
  - ASTHENIA [None]
  - DRUG DEPENDENCE [None]
  - FATIGUE [None]
  - RED BLOOD CELL SEDIMENTATION RATE INCREASED [None]
